FAERS Safety Report 10361681 (Version 3)
Quarter: 2014Q3

REPORT INFORMATION
  Report Type: Report from Study
  Country: JP (occurrence: JP)
  Receive Date: 20140805
  Receipt Date: 20140827
  Transmission Date: 20150326
  Serious: Yes (Death, Hospitalization)
  Sender: FDA-Public Use
  Company Number: JP-PFIZER INC-2014213922

PATIENT
  Age: 3 Month
  Sex: Male
  Weight: 1.8 kg

DRUGS (34)
  1. REVATIO [Suspect]
     Active Substance: SILDENAFIL CITRATE
     Dosage: 4 MG (DIVIDED INTO 4 TIMES) PER DAY
     Route: 048
     Dates: start: 20090515, end: 20090622
  2. ALFAROL [Concomitant]
     Active Substance: ALFACALCIDOL
     Dosage: UNK
     Route: 048
     Dates: start: 20090507
  3. LASIX [Concomitant]
     Active Substance: FUROSEMIDE
     Dosage: UNK
     Route: 048
     Dates: start: 20090513
  4. PHENOBAL [Concomitant]
     Active Substance: PHENOBARBITAL
     Dosage: UNK
     Route: 048
     Dates: start: 20090604
  5. ERYTHROCIN [Concomitant]
     Active Substance: ERYTHROMYCIN LACTOBIONATE
     Dosage: UNK
     Route: 048
     Dates: start: 20090614
  6. INOVAN [Concomitant]
     Active Substance: DOPAMINE HYDROCHLORIDE
     Dosage: UNK
     Route: 041
     Dates: start: 20091008, end: 20091013
  7. RAVONAL [Concomitant]
     Active Substance: THIOPENTAL
     Dosage: UNK
     Route: 041
     Dates: start: 20091008, end: 20091012
  8. REVATIO [Suspect]
     Active Substance: SILDENAFIL CITRATE
     Dosage: 5 MG (DIVIDED INTO 4 TIMES) PER DAY
     Route: 048
     Dates: start: 20090622, end: 2009
  9. REVATIO [Suspect]
     Active Substance: SILDENAFIL CITRATE
     Dosage: 8 MG (DIVIDED INTO 4 TIMES) PER DAY
     Route: 048
     Dates: start: 20091016, end: 20100105
  10. DORMICUM [Concomitant]
     Active Substance: MIDAZOLAM\MIDAZOLAM HYDROCHLORIDE
     Dosage: UNK
     Route: 041
     Dates: start: 20091006, end: 20091008
  11. HANP [Concomitant]
     Active Substance: CARPERITIDE
     Dosage: UNK
     Route: 041
     Dates: start: 20091008, end: 20091009
  12. FLOMOX [Concomitant]
     Active Substance: CEFCAPENE PIVOXIL HYDROCHLORIDE HYDRATE
     Dosage: UNK
     Route: 048
     Dates: start: 20091208, end: 20091210
  13. ALDACTONE [Concomitant]
     Active Substance: SPIRONOLACTONE
     Dosage: UNK
     Route: 048
     Dates: start: 20090513
  14. MEROPEN [Concomitant]
     Active Substance: MEROPENEM
     Dosage: UNK
     Route: 042
     Dates: start: 20091008, end: 20091017
  15. CERCINE [Concomitant]
     Active Substance: DIAZEPAM
     Dosage: UNK
     Route: 042
     Dates: start: 20091008, end: 20091009
  16. REVATIO [Suspect]
     Active Substance: SILDENAFIL CITRATE
     Dosage: 6 MG (DIVIDED INTO 4 TIMES) PER DAY
     Route: 048
     Dates: start: 20090715, end: 20090911
  17. REVATIO [Suspect]
     Active Substance: SILDENAFIL CITRATE
     Dosage: 10 MG (DIVIDED INTO 4 TIMES) PER DAY
     Route: 048
     Dates: start: 20100105
  18. GLUCONSAN K [Concomitant]
     Dosage: UNK
     Route: 048
     Dates: start: 20090523
  19. RENIVACE [Concomitant]
     Active Substance: ENALAPRIL
     Dosage: UNK
     Route: 048
     Dates: start: 20090615
  20. PITRESSIN [Concomitant]
     Active Substance: VASOPRESSIN
     Dosage: UNK
     Route: 041
     Dates: start: 20091008, end: 20091015
  21. NOBELBAR [Concomitant]
     Dosage: UNK
     Route: 042
     Dates: start: 20091010, end: 20091015
  22. REVATIO [Suspect]
     Active Substance: SILDENAFIL CITRATE
     Indication: PERSISTENT FOETAL CIRCULATION
     Dosage: 5 MG (DIVIDED INTO 4 TIMES) PER DAY VIA INTESTINAL INFUSION
     Dates: start: 20090403, end: 20090427
  23. MUCODYNE [Concomitant]
     Active Substance: CARBOCYSTEINE
     Dosage: UNK
     Route: 048
     Dates: start: 20090614
  24. PENTCILLIN [Concomitant]
     Active Substance: PIPERACILLIN SODIUM
     Dosage: UNK
     Route: 042
     Dates: start: 20091005, end: 20091007
  25. KENKETU GLOVENIN-I [Concomitant]
     Active Substance: HUMAN IMMUNOGLOBULIN G
     Dosage: UNK
     Route: 042
     Dates: start: 20091005, end: 20091007
  26. DOBUTREX [Concomitant]
     Active Substance: DOBUTAMINE HYDROCHLORIDE
     Dosage: UNK
     Route: 041
     Dates: start: 20091008, end: 20091013
  27. REVATIO [Suspect]
     Active Substance: SILDENAFIL CITRATE
     Dosage: 2 MG (DIVIDED INTO 4 TIMES) PER DAY
     Route: 048
     Dates: start: 20090427, end: 20090515
  28. REVATIO [Suspect]
     Active Substance: SILDENAFIL CITRATE
     Dosage: 8 MG (DIVIDED INTO 4 TIMES) PER DAY
     Route: 048
     Dates: start: 20090911, end: 20091009
  29. FENTANYL. [Concomitant]
     Active Substance: FENTANYL
     Dosage: UNK
     Route: 041
     Dates: start: 20091007, end: 20091014
  30. SAXIZON [Concomitant]
     Active Substance: HYDROCORTISONE SODIUM SUCCINATE
     Dosage: UNK
     Route: 042
     Dates: start: 20091008, end: 20091009
  31. ROCEPHIN [Concomitant]
     Active Substance: CEFTRIAXONE SODIUM
     Dosage: UNK
     Route: 042
     Dates: start: 20091010, end: 20091010
  32. REVATIO [Suspect]
     Active Substance: SILDENAFIL CITRATE
     Dosage: 15 MG (DIVIDED INTO 4 TIMES) PER DAY VIA INTESTINAL INFUSION
     Dates: start: 20091009, end: 20091016
  33. PENTCILLIN [Concomitant]
     Active Substance: PIPERACILLIN SODIUM
     Dosage: UNK
     Route: 042
     Dates: start: 20090627, end: 20090701
  34. MILRILA [Concomitant]
     Active Substance: MILRINONE
     Dosage: UNK
     Route: 041
     Dates: start: 20091009, end: 20091015

REACTIONS (4)
  - Pneumonia [Recovered/Resolved]
  - Persistent foetal circulation [Fatal]
  - Disease progression [Fatal]
  - Pneumonia [Recovered/Resolved]

NARRATIVE: CASE EVENT DATE: 20090627
